FAERS Safety Report 23154419 (Version 1)
Quarter: 2023Q4

REPORT INFORMATION
  Report Type: Spontaneous
  Country: US (occurrence: None)
  Receive Date: 20231107
  Receipt Date: 20231107
  Transmission Date: 20240109
  Serious: No
  Sender: FDA-Public Use
  Company Number: None

PATIENT
  Sex: Male

DRUGS (1)
  1. HUMIRA [Suspect]
     Active Substance: ADALIMUMAB
     Indication: Rheumatoid arthritis
     Dosage: 40MG  EVERY 14 DAYS SQ?
     Route: 058
     Dates: start: 202308

REACTIONS (4)
  - Drug ineffective [None]
  - Dizziness [None]
  - Muscle fatigue [None]
  - Injury [None]
